FAERS Safety Report 5926330-X (Version None)
Quarter: 2008Q4

REPORT INFORMATION
  Report Type: 
  Country: None (occurrence: None)
  Receive Date: 20081017
  Receipt Date: 20081007
  Transmission Date: 20090506
  Serious: Yes (Life-Threatening, Hospitalization)
  Sender: FDA-Public Use
  Company Number: 2008US002306

PATIENT
  Sex: Male

DRUGS (9)
  1. ADENOSCAN [Suspect]
     Indication: DRUG USE FOR UNKNOWN INDICATION
     Dosage: 140 UG, IV NOS
     Route: 042
     Dates: start: 20080729, end: 20080729
  2. ASPIRIN [Concomitant]
  3. CARBOCISTEINE (CARBOCISTEINE) [Concomitant]
  4. LEVOTHYROXINE SODIUM [Concomitant]
  5. SERETIDE (FLUTICASONE PROPIONATE, SALMETEROL) [Concomitant]
  6. CLOPIDOGREL [Concomitant]
  7. OMEPRAZOLE (OMEPRAZOLE SODIUM) [Concomitant]
  8. PERINDOPRIL ERBUMINE [Concomitant]
  9. SIMVASTATIN [Concomitant]

REACTIONS (2)
  - BRONCHOSPASM [None]
  - RESPIRATORY DISTRESS [None]
